FAERS Safety Report 25992527 (Version 1)
Quarter: 2025Q4

REPORT INFORMATION
  Report Type: Spontaneous
  Country: US (occurrence: US)
  Receive Date: 20251103
  Receipt Date: 20251103
  Transmission Date: 20260118
  Serious: No
  Sender: GALPHARM INTERNATIONAL
  Company Number: US-PERRIGO-25US002399

PATIENT

DRUGS (2)
  1. DOXYLAMINE SUCCINATE [Suspect]
     Active Substance: DOXYLAMINE SUCCINATE
     Indication: Sleep disorder
     Dosage: 25 MG, SINGLE
     Route: 048
  2. DOXYLAMINE SUCCINATE [Suspect]
     Active Substance: DOXYLAMINE SUCCINATE
     Dosage: 50 MG, SINGLE
     Route: 048

REACTIONS (3)
  - Drug ineffective [Unknown]
  - Therapeutic product effect delayed [Unknown]
  - Incorrect dose administered [Unknown]
